FAERS Safety Report 13706287 (Version 1)
Quarter: 2017Q2

REPORT INFORMATION
  Report Type: Spontaneous
  Country: US (occurrence: US)
  Receive Date: 20170630
  Receipt Date: 20170630
  Transmission Date: 20170830
  Serious: Yes (Hospitalization)
  Sender: FDA-Public Use
  Company Number: US-SA-2017SA016702

PATIENT
  Age: 44 Year
  Sex: Female

DRUGS (3)
  1. ISONIAZID. [Suspect]
     Active Substance: ISONIAZID
     Route: 065
     Dates: start: 20161201
  2. DOLUTEGRAVIR [Suspect]
     Active Substance: DOLUTEGRAVIR
     Route: 065
     Dates: start: 20161201
  3. PRIFTIN [Suspect]
     Active Substance: RIFAPENTINE
     Route: 065
     Dates: start: 20161201, end: 20161220

REACTIONS (11)
  - Lymphocyte count decreased [Recovered/Resolved]
  - Liver function test increased [Recovered/Resolved]
  - Hypotension [Recovered/Resolved]
  - Nausea [Recovered/Resolved]
  - Neutrophil count increased [Recovered/Resolved]
  - Vomiting [Recovered/Resolved]
  - Eosinophil count decreased [Recovered/Resolved]
  - Aspartate aminotransferase increased [Recovered/Resolved]
  - Influenza like illness [Recovered/Resolved]
  - Pyrexia [Recovered/Resolved]
  - Alanine aminotransferase increased [Recovered/Resolved]

NARRATIVE: CASE EVENT DATE: 201612
